FAERS Safety Report 7363253-6 (Version None)
Quarter: 2011Q1

REPORT INFORMATION
  Report Type: 
  Country: None (occurrence: None)
  Receive Date: 20110321
  Receipt Date: 20110308
  Transmission Date: 20110831
  Serious: Yes (Hospitalization)
  Sender: FDA-Public Use
  Company Number: US-JNJFOC-20090307045

PATIENT
  Sex: Male
  Weight: 50.3 kg

DRUGS (7)
  1. REMICADE [Suspect]
     Dosage: 3RD DOSE
     Route: 042
  2. REMICADE [Suspect]
     Dosage: 2ND DOSE
     Route: 042
  3. REMICADE [Suspect]
     Route: 042
  4. PREDNISONE [Concomitant]
     Indication: ILL-DEFINED DISORDER
  5. PREDNISONE [Concomitant]
  6. PREDNISONE [Concomitant]
  7. REMICADE [Suspect]
     Indication: COLITIS ULCERATIVE
     Dosage: 4TH DOSE
     Route: 042

REACTIONS (8)
  - HAEMORRHAGE [None]
  - URTICARIA [None]
  - INFLAMMATORY BOWEL DISEASE [None]
  - ORTHOSTATIC HYPOTENSION [None]
  - PAIN [None]
  - INFUSION RELATED REACTION [None]
  - RASH [None]
  - DIARRHOEA [None]
